FAERS Safety Report 7641511-5 (Version None)
Quarter: 2011Q3

REPORT INFORMATION
  Report Type: 
  Country: None (occurrence: None)
  Receive Date: 20110728
  Receipt Date: 20110719
  Transmission Date: 20111222
  Serious: Yes (Hospitalization)
  Sender: FDA-Public Use
  Company Number: US-ABBOTT-11P-163-0838064-00

PATIENT
  Age: 63 Year
  Sex: Male

DRUGS (1)
  1. VALPROIC ACID [Suspect]
     Indication: BIPOLAR DISORDER

REACTIONS (1)
  - SECONDARY ADRENOCORTICAL INSUFFICIENCY [None]
